FAERS Safety Report 5007725-8 (Version None)
Quarter: 2006Q2

REPORT INFORMATION
  Report Type: 
  Country: None (occurrence: None)
  Receive Date: 20060517
  Receipt Date: 20060508
  Transmission Date: 20061013
  Serious: Yes (Other)
  Sender: FDA-Public Use
  Company Number: 2006061510

PATIENT
  Age: 77 Year
  Sex: Male
  Weight: 80.7403 kg

DRUGS (7)
  1. VIAGRA [Suspect]
     Indication: ERECTILE DYSFUNCTION
     Dosage: (100 MG, AS NECESSARY)
     Dates: start: 20060313
  2. ATACAND [Concomitant]
  3. MULTIVITAMIN AND MINERAL SUPPLEMENT (MINERALS NOS, VITAMINS NOS) [Concomitant]
  4. METOPROLOL SUCCINATE [Concomitant]
  5. LIPITOR [Concomitant]
  6. ECOTRIN (ACETYLSALICYLIC ACID) [Concomitant]
  7. CLOPIDOGREL BISULFATE [Concomitant]

REACTIONS (4)
  - DRUG EFFECT DECREASED [None]
  - DYSURIA [None]
  - PROSTATIC OPERATION [None]
  - VISION BLURRED [None]
